FAERS Safety Report 15807302 (Version 1)
Quarter: 2019Q1

REPORT INFORMATION
  Report Type: Spontaneous
  Country: US (occurrence: US)
  Receive Date: 20190110
  Receipt Date: 20190110
  Transmission Date: 20190417
  Serious: Yes (Disabling)
  Sender: FDA-Public Use
  Company Number: None

PATIENT
  Age: 63 Year
  Sex: Female
  Weight: 77.4 kg

DRUGS (1)
  1. CIPROFLOXACIN. [Suspect]
     Active Substance: CIPROFLOXACIN
     Indication: GASTROINTESTINAL VIRAL INFECTION
     Dosage: ?          QUANTITY:20 TABLET(S);?
     Route: 048
     Dates: start: 20180619, end: 20180627

REACTIONS (14)
  - Nervous system disorder [None]
  - Tinnitus [None]
  - Gait disturbance [None]
  - Skin disorder [None]
  - Palpitations [None]
  - Feeling of despair [None]
  - Toxicity to various agents [None]
  - Muscle disorder [None]
  - Tendon disorder [None]
  - Occipital neuralgia [None]
  - Arthropathy [None]
  - Crying [None]
  - Toothache [None]
  - Abdominal discomfort [None]

NARRATIVE: CASE EVENT DATE: 20180627
